FAERS Safety Report 11968925 (Version 4)
Quarter: 2016Q4

REPORT INFORMATION
  Report Type: Report from Study
  Country: US (occurrence: US)
  Receive Date: 20160128
  Receipt Date: 20161020
  Transmission Date: 20170206
  Serious: No
  Sender: FDA-Public Use
  Company Number: PHEH2014US018854

PATIENT
  Age: 73 Year
  Sex: Male
  Weight: 74.83 kg

DRUGS (10)
  1. GEMFIBROZIL. [Concomitant]
     Active Substance: GEMFIBROZIL
     Indication: PRODUCT USED FOR UNKNOWN INDICATION
     Dosage: UNK
     Route: 065
  2. EXELON PATCH [Suspect]
     Active Substance: RIVASTIGMINE
     Dosage: 9.5 MG, QD PATCH (10 CM2)
     Route: 062
  3. MULTI-VIT [Concomitant]
     Active Substance: VITAMINS
     Indication: PRODUCT USED FOR UNKNOWN INDICATION
     Route: 065
  4. FENOFIBRATE. [Concomitant]
     Active Substance: FENOFIBRATE
     Indication: BLOOD TRIGLYCERIDES INCREASED
     Dosage: 160 OT, QD
     Route: 048
     Dates: start: 20160218
  5. EXELON PATCH [Suspect]
     Active Substance: RIVASTIGMINE
     Indication: DEMENTIA
     Dosage: 9.5 MG, QD PATCH (10 CM2)
     Route: 062
     Dates: start: 20130926
  6. RISPERDAL [Suspect]
     Active Substance: RISPERIDONE
     Indication: AGITATION
     Dosage: 2 MG, QD
     Route: 048
     Dates: start: 20160616, end: 20160623
  7. LIPITOR [Concomitant]
     Active Substance: ATORVASTATIN CALCIUM
     Indication: PRODUCT USED FOR UNKNOWN INDICATION
     Dosage: UNK
     Route: 065
  8. NAMENDA [Suspect]
     Active Substance: MEMANTINE HYDROCHLORIDE
     Indication: PRODUCT USED FOR UNKNOWN INDICATION
     Dosage: 28 MG, UNK
     Route: 065
  9. EXELON PATCH [Suspect]
     Active Substance: RIVASTIGMINE
     Dosage: 13.3 MG, QD PATCH (15 CM2)
     Route: 062
     Dates: start: 201401, end: 20150107
  10. FISH OIL [Concomitant]
     Active Substance: FISH OIL
     Indication: PRODUCT USED FOR UNKNOWN INDICATION
     Route: 065

REACTIONS (17)
  - Diarrhoea [Recovered/Resolved]
  - Speech disorder [Unknown]
  - Movement disorder [Recovered/Resolved]
  - Incorrect drug administration duration [Unknown]
  - Feeling abnormal [Unknown]
  - Ataxia [Recovering/Resolving]
  - Product adhesion issue [Unknown]
  - Application site erythema [Unknown]
  - Salivary hypersecretion [Recovered/Resolved]
  - Kyphosis [Recovered/Resolved]
  - Tremor [Recovered/Resolved]
  - Sedation [Recovering/Resolving]
  - Abdominal discomfort [Recovered/Resolved]
  - Application site discolouration [Unknown]
  - Memory impairment [Unknown]
  - Hyperhidrosis [Recovered/Resolved]
  - Application site irritation [Unknown]

NARRATIVE: CASE EVENT DATE: 20141231
